FAERS Safety Report 7390954-6 (Version None)
Quarter: 2011Q2

REPORT INFORMATION
  Report Type: 
  Country: None (occurrence: None)
  Receive Date: 20110404
  Receipt Date: 20110329
  Transmission Date: 20111010
  Serious: No
  Sender: FDA-Public Use
  Company Number: US-PFIZER INC-2011070219

PATIENT
  Sex: Male
  Weight: 104.31 kg

DRUGS (1)
  1. SUTENT [Suspect]
     Indication: LUNG NEOPLASM MALIGNANT
     Dosage: 50 MG, DAILY
     Route: 048
     Dates: start: 20100101, end: 20110201

REACTIONS (4)
  - DISEASE PROGRESSION [None]
  - ANAEMIA [None]
  - MALAISE [None]
  - LUNG NEOPLASM MALIGNANT [None]
